FAERS Safety Report 16477800 (Version 2)
Quarter: 2019Q3

REPORT INFORMATION
  Report Type: Spontaneous
  Country: UY (occurrence: UY)
  Receive Date: 20190626
  Receipt Date: 20190704
  Transmission Date: 20191004
  Serious: Yes (Death, Other)
  Sender: FDA-Public Use
  Company Number: UY-ROCHE-2340966

PATIENT
  Age: 60 Year
  Sex: Female

DRUGS (7)
  1. ATEZOLIZUMAB. [Suspect]
     Active Substance: ATEZOLIZUMAB
     Indication: LUNG NEOPLASM MALIGNANT
     Dosage: SINGLE DOSE
     Route: 042
     Dates: start: 20190522
  2. MORPHINE [Concomitant]
     Active Substance: MORPHINE
  3. METOCLOPRAMIDE. [Concomitant]
     Active Substance: METOCLOPRAMIDE
  4. FILGRASTIM [Concomitant]
     Active Substance: FILGRASTIM
     Route: 058
  5. CARBOPLATIN. [Concomitant]
     Active Substance: CARBOPLATIN
  6. PACLITAXEL. [Concomitant]
     Active Substance: PACLITAXEL
  7. METFORMIN [Concomitant]
     Active Substance: METFORMIN HYDROCHLORIDE
     Route: 065

REACTIONS (10)
  - Disorientation [Unknown]
  - White blood cell count decreased [Unknown]
  - Aplasia [Unknown]
  - Hyponatraemia [Unknown]
  - Muscle rigidity [Unknown]
  - Paraesthesia [Unknown]
  - Lymphopenia [Unknown]
  - Death [Fatal]
  - Asthenia [Unknown]
  - Anaemia [Unknown]

NARRATIVE: CASE EVENT DATE: 20190528
